FAERS Safety Report 6311764-4 (Version None)
Quarter: 2009Q3

REPORT INFORMATION
  Report Type: 
  Country: None (occurrence: None)
  Receive Date: 20090813
  Receipt Date: 20090813
  Transmission Date: 20100115
  Serious: Yes (Death)
  Sender: FDA-Public Use
  Company Number: None

PATIENT
  Sex: Female

DRUGS (7)
  1. REVLIMID [Suspect]
     Dosage: 10MG DAILY ORALLY
     Route: 048
     Dates: start: 20070101, end: 20080101
  2. AUGMENTIN [Concomitant]
  3. CIPROFLOXACIN [Concomitant]
  4. DEXAMETHASONE [Concomitant]
  5. FUROSEMIDE [Concomitant]
  6. AMITRIPTYLINE HCL [Concomitant]
  7. LACTULOSE [Concomitant]

REACTIONS (4)
  - HYPERTENSION [None]
  - MULTIPLE MYELOMA [None]
  - OSTEOPOROSIS [None]
  - RENAL FAILURE CHRONIC [None]
